FAERS Safety Report 13141976 (Version 2)
Quarter: 2017Q1

REPORT INFORMATION
  Report Type: Spontaneous
  Country: DE (occurrence: DE)
  Receive Date: 20170123
  Receipt Date: 20170222
  Transmission Date: 20170428
  Serious: Yes (Hospitalization, Disabling, Other)
  Sender: FDA-Public Use
  Company Number: GXKR2017DE000754

PATIENT
  Age: 72 Year
  Sex: Female
  Weight: 80 kg

DRUGS (2)
  1. VALPROAT HEXAL [Suspect]
     Active Substance: DIVALPROEX SODIUM
     Dosage: 300 MG, TWICE DAILY
     Route: 048
     Dates: start: 201701
  2. VALPROAT HEXAL [Suspect]
     Active Substance: DIVALPROEX SODIUM
     Indication: BIPOLAR I DISORDER
     Dosage: 600 MG, TWICE DAILY
     Route: 048
     Dates: start: 201602

REACTIONS (4)
  - Dyspnoea exertional [Not Recovered/Not Resolved]
  - Pneumonitis [Unknown]
  - Secretion discharge [Unknown]
  - Dyspnoea at rest [Not Recovered/Not Resolved]

NARRATIVE: CASE EVENT DATE: 2016
